FAERS Safety Report 19028407 (Version 1)
Quarter: 2021Q1

REPORT INFORMATION
  Report Type: Spontaneous
  Country: US (occurrence: US)
  Receive Date: 20210318
  Receipt Date: 20210318
  Transmission Date: 20210420
  Serious: No
  Sender: FDA-Public Use
  Company Number: US-SCILEX PHARMACEUTICALS INC.-2021SCX00006

PATIENT
  Sex: Female

DRUGS (1)
  1. ZTLIDO [Suspect]
     Active Substance: LIDOCAINE
     Indication: ARTHROPATHY
     Dosage: 1 DOSAGE UNITS (PATCH), ONCE
     Route: 061

REACTIONS (2)
  - Palpitations [Recovered/Resolved]
  - Off label use [Recovered/Resolved]
